FAERS Safety Report 8395649-8 (Version None)
Quarter: 2012Q2

REPORT INFORMATION
  Report Type: 
  Country: None (occurrence: None)
  Receive Date: 20120530
  Receipt Date: 20120112
  Transmission Date: 20120825
  Serious: No
  Sender: FDA-Public Use
  Company Number: US-GLAXOSMITHKLINE-A0961413A

PATIENT

DRUGS (2)
  1. VENTOLIN [Suspect]
     Indication: ASTHMA
     Route: 055
  2. UNKNOWN [Concomitant]

REACTIONS (1)
  - TACHYCARDIA [None]
